FAERS Safety Report 12551569 (Version 2)
Quarter: 2016Q3

REPORT INFORMATION
  Report Type: Spontaneous
  Country: JP (occurrence: JP)
  Receive Date: 20160713
  Receipt Date: 20160805
  Transmission Date: 20161109
  Serious: Yes (Life-Threatening, Hospitalization)
  Sender: FDA-Public Use
  Company Number: JP-ROCHE-1793664

PATIENT
  Age: 67 Year
  Sex: Male
  Weight: 68 kg

DRUGS (3)
  1. XELODA [Suspect]
     Active Substance: CAPECITABINE
     Indication: RECTAL CANCER
     Dosage: FOUR COURSES?MOST RECENT DOSE: 20/JUN/2016
     Route: 048
     Dates: start: 20160420
  2. AVASTIN [Suspect]
     Active Substance: BEVACIZUMAB
     Indication: RECTAL CANCER
     Dosage: FOUR COURSES?MOST RECENT DOSE: 20/JUN/2016
     Route: 041
     Dates: start: 20160509
  3. ELPLAT [Suspect]
     Active Substance: OXALIPLATIN
     Indication: RECTAL CANCER
     Dosage: MOST RECENT DOSE: 20/JUN/2016
     Route: 041
     Dates: start: 20160420

REACTIONS (4)
  - Constipation [Unknown]
  - Neuropathy peripheral [Unknown]
  - Peptic ulcer [Unknown]
  - Gastrointestinal perforation [Not Recovered/Not Resolved]

NARRATIVE: CASE EVENT DATE: 20160620
